FAERS Safety Report 12799447 (Version 4)
Quarter: 2017Q2

REPORT INFORMATION
  Report Type: Spontaneous
  Country: US (occurrence: US)
  Receive Date: 20160930
  Receipt Date: 20170409
  Transmission Date: 20170830
  Serious: Yes (Other)
  Sender: FDA-Public Use
  Company Number: US-TEVA-697676USA

PATIENT
  Age: 55 Year
  Sex: Male
  Weight: 70.37 kg

DRUGS (4)
  1. FENTANYL. [Suspect]
     Active Substance: FENTANYL
     Indication: OSTEONECROSIS
     Dosage: TWO 100MCG FENTANYL PATCHES EVERY 72 HOURS
     Route: 062
     Dates: start: 20160921
  2. FENTANYL. [Suspect]
     Active Substance: FENTANYL
     Indication: CERVICAL VERTEBRAL FRACTURE
  3. FENTANYL. [Suspect]
     Active Substance: FENTANYL
     Indication: NEOPLASM MALIGNANT
  4. FENTANYL. [Suspect]
     Active Substance: FENTANYL
     Indication: CERVICAL VERTEBRAL FRACTURE

REACTIONS (8)
  - Hypertension [Not Recovered/Not Resolved]
  - Heart rate abnormal [Unknown]
  - Drug ineffective [Unknown]
  - Cold sweat [Not Recovered/Not Resolved]
  - Chest pain [Not Recovered/Not Resolved]
  - Myocardial infarction [Unknown]
  - Cardiac failure [Unknown]
  - Arrhythmia [Unknown]

NARRATIVE: CASE EVENT DATE: 20160925
